FAERS Safety Report 9729788 (Version 1)
Quarter: 2013Q4

REPORT INFORMATION
  Report Type: Spontaneous
  Country: US (occurrence: US)
  Receive Date: 20131204
  Receipt Date: 20131204
  Transmission Date: 20140711
  Serious: No
  Sender: FDA-Public Use
  Company Number: US-GILEAD-2009-0022592

PATIENT
  Sex: Female
  Weight: 108.86 kg

DRUGS (11)
  1. LETAIRIS [Suspect]
     Indication: PULMONARY ARTERIAL HYPERTENSION
     Route: 048
     Dates: start: 20090515
  2. DYAZIDE [Concomitant]
  3. MOEXIPRIL HCL [Concomitant]
  4. LIPITOR [Concomitant]
  5. OXYGEN [Concomitant]
  6. ASPIRIN [Concomitant]
  7. ADVAIR [Concomitant]
  8. PROAIR HFA [Concomitant]
  9. TYLENOL [Concomitant]
  10. IBUPROFEN [Concomitant]
  11. SINUS MEDICATION [Concomitant]

REACTIONS (4)
  - Swelling [Unknown]
  - Dyspnoea [Unknown]
  - Flushing [Unknown]
  - Oedema [Unknown]
